FAERS Safety Report 14911508 (Version 2)
Quarter: 2018Q2

REPORT INFORMATION
  Report Type: Report from Study
  Country: TR (occurrence: TR)
  Receive Date: 20180518
  Receipt Date: 20180525
  Transmission Date: 20180711
  Serious: Yes (Death)
  Sender: FDA-Public Use
  Company Number: TR-EMD SERONO-9026725

PATIENT
  Age: 4 Year
  Sex: Female

DRUGS (1)
  1. SAIZEN [Suspect]
     Active Substance: SOMATROPIN
     Indication: GROWTH HORMONE DEFICIENCY
     Route: 058
     Dates: start: 20170314

REACTIONS (2)
  - Pulmonary haemorrhage [Fatal]
  - Blood urine present [Fatal]

NARRATIVE: CASE EVENT DATE: 20180509
